FAERS Safety Report 5961171-9 (Version None)
Quarter: 2008Q4

REPORT INFORMATION
  Report Type: 
  Country: None (occurrence: None)
  Receive Date: 20081121
  Receipt Date: 20081113
  Transmission Date: 20090506
  Serious: Yes (Hospitalization, Other)
  Sender: FDA-Public Use
  Company Number: US-BIOGENIDEC-2006BI012381

PATIENT
  Age: 41 Year
  Sex: Female

DRUGS (4)
  1. AVONEX [Suspect]
     Indication: MULTIPLE SCLEROSIS
     Route: 030
     Dates: start: 19970801, end: 20030201
  2. AVONEX [Suspect]
     Route: 030
     Dates: start: 20030201, end: 20030301
  3. GLUCOPHAGE [Concomitant]
     Indication: DIABETES MELLITUS
  4. ZOLOFT [Concomitant]
     Indication: DRUG USE FOR UNKNOWN INDICATION

REACTIONS (7)
  - ESCHERICHIA INFECTION [None]
  - HELLP SYNDROME [None]
  - HEPATITIS [None]
  - PRE-ECLAMPSIA [None]
  - PREMATURE BABY [None]
  - RENAL FAILURE [None]
  - TYPE 2 DIABETES MELLITUS [None]
